FAERS Safety Report 4883263-8 (Version None)
Quarter: 2006Q1

REPORT INFORMATION
  Report Type: 
  Country: None (occurrence: None)
  Receive Date: 20060112
  Receipt Date: 20060104
  Transmission Date: 20060701
  Serious: Yes (Life-Threatening, Hospitalization, Disabling)
  Sender: FDA-Public Use
  Company Number: 2006RR-01444

PATIENT
  Age: 22 Year
  Sex: Male
  Weight: 62 kg

DRUGS (4)
  1. IBUPROFEN [Suspect]
     Dosage: ORAL
     Route: 048
  2. ACETAMINOPHEN [Suspect]
     Dosage: ORAL
     Route: 048
  3. CODEINE PHOSPHATE (CODEINE PHOSPHATE) [Suspect]
     Dosage: ORAL
     Route: 048
  4. SOLPADEINE (CAFFEINE) [Suspect]
     Dosage: ORAL
     Route: 048

REACTIONS (6)
  - INFECTION [None]
  - LYMPHOPENIA [None]
  - NEUTROPENIA [None]
  - PHARYNGOLARYNGEAL PAIN [None]
  - PLATELET COUNT DECREASED [None]
  - TOXIC EPIDERMAL NECROLYSIS [None]
